FAERS Safety Report 11227306 (Version 1)
Quarter: 2015Q2

REPORT INFORMATION
  Report Type: Report from Study
  Country: DE (occurrence: DE)
  Receive Date: 20150630
  Receipt Date: 20150630
  Transmission Date: 20150821
  Serious: Yes (Life-Threatening, Hospitalization, Other)
  Sender: FDA-Public Use
  Company Number: DE-ROCHE-590089

PATIENT
  Age: 77 Year
  Sex: Male
  Weight: 90 kg

DRUGS (26)
  1. RITUXIMAB [Suspect]
     Active Substance: RITUXIMAB
     Indication: DIFFUSE LARGE B-CELL LYMPHOMA
     Dosage: FORM: INFUSION, FREQUENCY: 1X.
     Route: 042
     Dates: start: 20080710, end: 20081024
  2. DOXORUBICIN [Suspect]
     Active Substance: DOXORUBICIN
     Dosage: FREQUENCY REPORTED:1X , LAST DOSE PRIOR TO SAE: 26 SEP 2008
     Route: 042
     Dates: start: 20080711, end: 20080926
  3. BISOPROLOL FUMARATE. [Concomitant]
     Active Substance: BISOPROLOL FUMARATE
     Route: 065
  4. MOXONIDINE [Concomitant]
     Active Substance: MOXONIDINE
     Route: 065
  5. ESOMEPRAZOLE [Concomitant]
     Active Substance: ESOMEPRAZOLE
     Route: 065
  6. RITUXIMAB [Suspect]
     Active Substance: RITUXIMAB
     Dosage: FORM: INFUSION, FREQUENCY REPORT: 1X
     Route: 042
  7. VINCRISTINE [Suspect]
     Active Substance: VINCRISTINE
     Indication: DIFFUSE LARGE B-CELL LYMPHOMA
     Route: 042
  8. COTRIMOXAZOLE [Concomitant]
     Active Substance: SULFAMETHOXAZOLE\TRIMETHOPRIM
     Route: 065
     Dates: start: 20081004, end: 20081005
  9. ESOMEPRAZOLE [Concomitant]
     Active Substance: ESOMEPRAZOLE
     Route: 065
  10. PREDNISONE. [Suspect]
     Active Substance: PREDNISONE
     Dosage: FREQUENCY REPORTED: 5, LAST DOSE PRIOR TO SAE: 30 SEP 2008
     Route: 048
     Dates: start: 20080711, end: 20080930
  11. ENALAPRIL MALEATE. [Concomitant]
     Active Substance: ENALAPRIL MALEATE
     Route: 065
  12. BISOPROLOL FUMARATE. [Concomitant]
     Active Substance: BISOPROLOL FUMARATE
     Route: 065
  13. BEVACIZUMAB [Suspect]
     Active Substance: BEVACIZUMAB
     Dosage: FORM: INFUSION, FREQUENCY REPORTED AS 1
     Route: 042
  14. DOXORUBICIN [Suspect]
     Active Substance: DOXORUBICIN
     Indication: DIFFUSE LARGE B-CELL LYMPHOMA
     Route: 042
  15. CYCLOPHOSPHAMIDE. [Suspect]
     Active Substance: CYCLOPHOSPHAMIDE
     Dosage: LAST DOSE PRIOR TO EVENT ON 26 SEP 2008, FORM: INFUSION
     Route: 042
  16. ALLOPURINOL. [Concomitant]
     Active Substance: ALLOPURINOL
     Route: 065
  17. COTRIMOXAZOLE [Concomitant]
     Active Substance: SULFAMETHOXAZOLE\TRIMETHOPRIM
     Route: 065
     Dates: start: 20080710, end: 20080903
  18. VINCRISTINE [Suspect]
     Active Substance: VINCRISTINE
     Dosage: FREQUENCY REPORTED: 1X, LAST DOSE PRIOR TO SAE: 26 SEP 2008?DOSE FORM:INFUSION
     Route: 042
     Dates: start: 20080711, end: 20080926
  19. LERCANIDIPINE [Concomitant]
     Active Substance: LERCANIDIPINE
     Route: 065
  20. LEVOFLOXACIN. [Concomitant]
     Active Substance: LEVOFLOXACIN
     Route: 065
     Dates: start: 20080813, end: 20080923
  21. BEVACIZUMAB [Suspect]
     Active Substance: BEVACIZUMAB
     Indication: DIFFUSE LARGE B-CELL LYMPHOMA
     Dosage: FORM: INFUSION?FREQUENCY GIVEN AS 1 X
     Route: 042
     Dates: start: 20080709, end: 20081024
  22. CYCLOPHOSPHAMIDE. [Suspect]
     Active Substance: CYCLOPHOSPHAMIDE
     Indication: DIFFUSE LARGE B-CELL LYMPHOMA
     Dosage: FORM: INFUSION, FREQUENCY: 6.
     Route: 042
  23. ENALAPRIL/HCT [Concomitant]
     Dosage: DOSE: ENALAPRIL/HYDROCHLOROTHIAZIDE: 10/25 MG
     Route: 065
  24. SIMVASTATIN. [Concomitant]
     Active Substance: SIMVASTATIN
     Route: 065
  25. COTRIMOXAZOLE [Concomitant]
     Active Substance: SULFAMETHOXAZOLE\TRIMETHOPRIM
     Route: 065
  26. PREDNISONE. [Suspect]
     Active Substance: PREDNISONE
     Indication: DIFFUSE LARGE B-CELL LYMPHOMA
     Route: 048

REACTIONS (4)
  - Dyspnoea [Recovered/Resolved]
  - Dyspnoea [Recovered/Resolved]
  - Panic attack [Recovered/Resolved]
  - Dyspnoea [Recovered/Resolved]

NARRATIVE: CASE EVENT DATE: 20081003
